FAERS Safety Report 14074420 (Version 2)
Quarter: 2018Q1

REPORT INFORMATION
  Report Type: Report from Study
  Country: US (occurrence: US)
  Receive Date: 20171010
  Receipt Date: 20180219
  Transmission Date: 20180508
  Serious: Yes (Hospitalization)
  Sender: FDA-Public Use
  Company Number: US-JNJFOC-20171008770

PATIENT
  Age: 43 Year
  Sex: Male

DRUGS (14)
  1. NORCO [Concomitant]
     Active Substance: ACETAMINOPHEN\HYDROCODONE BITARTRATE
  2. EMTRIVA [Concomitant]
     Active Substance: EMTRICITABINE
  3. LORAZEPAM. [Concomitant]
     Active Substance: LORAZEPAM
  4. RITUXIMAB. [Concomitant]
     Active Substance: RITUXIMAB
  5. IMBRUVICA [Suspect]
     Active Substance: IBRUTINIB
     Indication: B-CELL SMALL LYMPHOCYTIC LYMPHOMA
     Route: 048
     Dates: start: 20170808
  6. BACTRIM DS [Concomitant]
     Active Substance: SULFAMETHOXAZOLE\TRIMETHOPRIM
  7. HYOSCYAMINE. [Concomitant]
     Active Substance: HYOSCYAMINE
  8. ISENTRESS [Concomitant]
     Active Substance: RALTEGRAVIR POTASSIUM
  9. PANTOPRAZOLE [Concomitant]
     Active Substance: PANTOPRAZOLE
  10. OXYCODONE [Concomitant]
     Active Substance: OXYCODONE
  11. BORTEZOMIB [Concomitant]
     Active Substance: BORTEZOMIB
  12. PROCHLORPERAZINE. [Concomitant]
     Active Substance: PROCHLORPERAZINE
  13. VIREAD [Concomitant]
     Active Substance: TENOFOVIR DISOPROXIL FUMARATE
  14. EPOCH [Concomitant]
     Active Substance: ALCOHOL\SALICYLIC ACID

REACTIONS (5)
  - Acute respiratory failure [Unknown]
  - Renal failure [Not Recovered/Not Resolved]
  - Encephalopathy [Recovered/Resolved]
  - Pneumonia [Unknown]
  - General physical health deterioration [Unknown]

NARRATIVE: CASE EVENT DATE: 20170830
